FAERS Safety Report 8786013 (Version 1)
Quarter: 2012Q4

REPORT INFORMATION
  Report Type: 
  Country: FR (occurrence: FR)
  Receive Date: 20120914
  Receipt Date: 20120914
  Transmission Date: 20130627
  Serious: Yes (Hospitalization)
  Sender: FDA-Public Use
  Company Number: FR-BAXTER-2012BAX016383

PATIENT
  Age: 44 Year
  Sex: Female

DRUGS (3)
  1. ENDOXAN 2000 MG, LYOPHILISAT POUR SOLUTION INJECTABLE [Suspect]
     Indication: MULTIPLE SCLEROSIS
     Route: 042
  2. ENDOXAN 2000 MG, LYOPHILISAT POUR SOLUTION INJECTABLE [Suspect]
     Route: 042
     Dates: start: 20120406
  3. ENDOXAN 2000 MG, LYOPHILISAT POUR SOLUTION INJECTABLE [Suspect]
     Route: 042
     Dates: start: 201205

REACTIONS (1)
  - Enterocolitis infectious [Recovered/Resolved]
